FAERS Safety Report 23768582 (Version 2)
Quarter: 2024Q2

REPORT INFORMATION
  Report Type: Spontaneous
  Country: CN (occurrence: CN)
  Receive Date: 20240422
  Receipt Date: 20240516
  Transmission Date: 20240716
  Serious: Yes (Other)
  Sender: FDA-Public Use
  Company Number: CN-SANOFI-02016487

PATIENT
  Age: 57 Year
  Sex: Male

DRUGS (1)
  1. PRALUENT [Suspect]
     Active Substance: ALIROCUMAB
     Indication: Product used for unknown indication
     Dosage: UNK
     Route: 065
     Dates: start: 202401

REACTIONS (2)
  - Blindness transient [Unknown]
  - Dizziness [Unknown]

NARRATIVE: CASE EVENT DATE: 20240416
